FAERS Safety Report 4662256-X (Version None)
Quarter: 2005Q2

REPORT INFORMATION
  Report Type: 
  Country: None (occurrence: None)
  Receive Date: 20050512
  Receipt Date: 20050429
  Transmission Date: 20051028
  Serious: Yes (Hospitalization)
  Sender: FDA-Public Use
  Company Number: 2005068446

PATIENT
  Age: 56 Year
  Sex: Female
  Weight: 88.4514 kg

DRUGS (1)
  1. ZITHROMAX [Suspect]
     Indication: UPPER RESPIRATORY TRACT INFECTION
     Dosage: 250 MG (250 MG, QD INTERVAL: EVERY DAY), ORAL
     Route: 048
     Dates: start: 20050322

REACTIONS (13)
  - ABDOMINAL DISCOMFORT [None]
  - ABDOMINAL PAIN UPPER [None]
  - ANXIETY [None]
  - EAR DISCOMFORT [None]
  - FLATULENCE [None]
  - GASTRIC PERFORATION [None]
  - GASTROINTESTINAL INFECTION [None]
  - GASTROINTESTINAL INFLAMMATION [None]
  - INSOMNIA [None]
  - NAUSEA [None]
  - OESOPHAGEAL DISORDER [None]
  - PAIN [None]
  - TINNITUS [None]
